FAERS Safety Report 24206583 (Version 1)
Quarter: 2024Q3

REPORT INFORMATION
  Report Type: Report from Study
  Country: KR (occurrence: KR)
  Receive Date: 20240813
  Receipt Date: 20240813
  Transmission Date: 20241016
  Serious: Yes (Other)
  Sender: JAZZ
  Company Number: KR-JAZZ PHARMACEUTICALS-2024-KR-006744

PATIENT
  Age: 75 Year
  Sex: Male
  Weight: 60 kg

DRUGS (29)
  1. VYXEOS [Suspect]
     Active Substance: CYTARABINE\DAUNORUBICIN
     Indication: Acute myeloid leukaemia
     Dosage: CYCLE 1 CYTARABINE 44 MILLIGRAM/SQ. METER, DAUNORUBICIN 100 MILLIGRAM/SQ. METER
     Dates: start: 20240124, end: 20240126
  2. VYXEOS [Suspect]
     Active Substance: CYTARABINE\DAUNORUBICIN
     Dosage: CYCLE 2 CYTARABINE 44 MILLIGRAM/SQ. METER, DAUNORUBICIN 100 MILLIGRAM/SQ. METER
     Dates: start: 20240220, end: 20240222
  3. ULTRACET [Concomitant]
     Active Substance: ACETAMINOPHEN\TRAMADOL HYDROCHLORIDE
     Indication: Prophylaxis
     Dosage: 1 TAB, BID
     Route: 048
     Dates: start: 20220206
  4. ZOYLEX [ACICLOVIR] [Concomitant]
     Indication: Prophylaxis
     Dosage: 200 MILLIGRAM, BID
     Route: 048
     Dates: start: 20220602
  5. EXJADE [Concomitant]
     Active Substance: DEFERASIROX
     Indication: Primary myelofibrosis
     Dosage: 360 MILLIGRAM, QD
     Route: 048
     Dates: start: 20230427, end: 20240127
  6. SULFAMETHOXAZOLE\TRIMETHOPRIM [Concomitant]
     Active Substance: SULFAMETHOXAZOLE\TRIMETHOPRIM
     Indication: Prophylaxis
     Dosage: 480 MILLIGRAM, QD
     Route: 048
     Dates: start: 20220602
  7. LYRICA [Concomitant]
     Active Substance: PREGABALIN
     Indication: Prophylaxis
     Dosage: 50 MILLIGRAM, QD
     Route: 048
     Dates: start: 20231229
  8. GASTER [Concomitant]
     Active Substance: FAMOTIDINE
     Indication: Product used for unknown indication
     Dosage: 20 MILLIGRAM, QD
     Route: 048
     Dates: start: 20220602, end: 20240204
  9. KYTRIL [Concomitant]
     Active Substance: GRANISETRON HYDROCHLORIDE
     Indication: Prophylaxis
     Dosage: 1 MILLIGRAM, PRN
     Route: 042
     Dates: start: 20240126, end: 20240126
  10. MACPERAN [METOCLOPRAMIDE] [Concomitant]
     Indication: Prophylaxis
     Dosage: 10 MILLIGRAM, PRN
     Route: 042
     Dates: start: 20240124, end: 20240124
  11. MACPERAN [METOCLOPRAMIDE] [Concomitant]
     Dosage: 10 MILLIGRAM, PRN
     Route: 042
     Dates: start: 20240126, end: 20240126
  12. PYRIDOXINE HYDROCHLORIDE [Concomitant]
     Active Substance: PYRIDOXINE HYDROCHLORIDE
     Indication: Prophylaxis
     Dosage: 100 MILLIGRAM, QD
     Route: 048
     Dates: start: 20240125, end: 20240126
  13. CITOPCIN [CIPROFLOXACIN LACTATE] [Concomitant]
     Indication: Prophylaxis
     Dosage: 250 MILLIGRAM, BID
     Route: 048
     Dates: start: 20240124, end: 20240126
  14. NOXAFIL [Concomitant]
     Active Substance: POSACONAZOLE
     Indication: Prophylaxis
     Dosage: 300 MILLIGRAM, QD
     Route: 048
     Dates: start: 20240131
  15. CARDIOXANE [Concomitant]
     Active Substance: DEXRAZOXANE HYDROCHLORIDE
     Indication: Product used for unknown indication
     Dosage: 500 MILLIGRAM, QD
     Route: 042
     Dates: start: 20240124, end: 20240124
  16. CARDIOXANE [Concomitant]
     Active Substance: DEXRAZOXANE HYDROCHLORIDE
     Dosage: 500 MILLIGRAM, QD
     Route: 042
     Dates: start: 20240126, end: 20240126
  17. CALCIUM CHLORIDE\POTASSIUM CHLORIDE\SODIUM CHLORIDE\SODIUM LACTATE [Concomitant]
     Active Substance: CALCIUM CHLORIDE\POTASSIUM CHLORIDE\SODIUM CHLORIDE\SODIUM LACTATE
     Indication: Prophylaxis
     Dosage: 100 MCG/ML/L QD
     Route: 042
     Dates: start: 20240124, end: 20240124
  18. CALCIUM CHLORIDE\POTASSIUM CHLORIDE\SODIUM CHLORIDE\SODIUM LACTATE [Concomitant]
     Active Substance: CALCIUM CHLORIDE\POTASSIUM CHLORIDE\SODIUM CHLORIDE\SODIUM LACTATE
     Dosage: 100 MCG/ML/L QD
     Route: 042
     Dates: start: 20240126, end: 20240126
  19. LASIX [Concomitant]
     Active Substance: FUROSEMIDE
     Indication: Heart failure with preserved ejection fraction
     Dosage: 10 MILLIGRAM, QD
     Route: 042
     Dates: start: 20240125, end: 20240130
  20. PREDNISOLONE [Concomitant]
     Active Substance: PREDNISOLONE
     Indication: Prophylaxis
     Dosage: 7.5 MILLIGRAM, QD
     Route: 048
     Dates: start: 20240203, end: 20240204
  21. URSODIOL [Concomitant]
     Active Substance: URSODIOL
     Indication: Product used for unknown indication
     Dosage: 200 MILLIGRAM, TID
     Route: 048
     Dates: start: 20240202, end: 20240212
  22. TRAMADOL HYDROCHLORIDE [Concomitant]
     Active Substance: TRAMADOL HYDROCHLORIDE
     Indication: Pain
     Dosage: 100 MILLIGRAM, PRN
     Route: 042
     Dates: start: 20240214, end: 20240216
  23. TRAMADOL HYDROCHLORIDE [Concomitant]
     Active Substance: TRAMADOL HYDROCHLORIDE
     Dosage: UNK
     Route: 042
     Dates: start: 20240319, end: 20240319
  24. HIDRASEC INFANTS [Concomitant]
     Indication: Prophylaxis
     Dosage: 100 MILLIGRAM, TID
     Route: 048
     Dates: start: 20240306
  25. NEXIUM I.V. [Concomitant]
     Active Substance: ESOMEPRAZOLE SODIUM
     Indication: Prophylaxis
     Dosage: 40 MILLIGRAM, QD
     Route: 042
     Dates: start: 20240306, end: 20240314
  26. SPIRONOLACTONE [Concomitant]
     Active Substance: SPIRONOLACTONE
     Indication: Heart failure with preserved ejection fraction
     Dosage: UNK
     Route: 048
     Dates: start: 20240307
  27. TAMIPOOL [VITAMINS NOS] [Concomitant]
     Indication: Nutritional supplementation
     Dosage: OTHERS, QD
     Route: 042
     Dates: start: 20240229, end: 20240313
  28. MACPERAN [METOCLOPRAMIDE] [Concomitant]
     Indication: Prophylaxis
     Dosage: 1 TAB, PRN
     Route: 048
     Dates: start: 20240311, end: 20240321
  29. ONUREG [Concomitant]
     Active Substance: AZACITIDINE
     Indication: Product used for unknown indication

REACTIONS (8)
  - Pneumonia [Recovered/Resolved]
  - Pruritus [Recovered/Resolved]
  - Irritability [Recovered/Resolved]
  - Urticaria [Recovered/Resolved]
  - Hypotension [Recovered/Resolved]
  - Headache [Recovered/Resolved]
  - Vomiting [Recovered/Resolved]
  - Pyrexia [Recovered/Resolved]

NARRATIVE: CASE EVENT DATE: 20240125
